FAERS Safety Report 16449520 (Version 1)
Quarter: 2019Q2

REPORT INFORMATION
  Report Type: Spontaneous
  Country: US (occurrence: US)
  Receive Date: 20190619
  Receipt Date: 20190619
  Transmission Date: 20190711
  Serious: No
  Sender: FDA-Public Use
  Company Number: US-ROCHE-2273526

PATIENT
  Age: 67 Year
  Sex: Female
  Weight: 59.47 kg

DRUGS (13)
  1. ERGOCALCIFEROL. [Concomitant]
     Active Substance: ERGOCALCIFEROL
     Dosage: TAKE ONE CAPSULE ON EVERY SATURDAY AND SUNDAY
     Route: 048
     Dates: start: 20170523, end: 20180912
  2. PANTOPRAZOLE SODIUM. [Concomitant]
     Active Substance: PANTOPRAZOLE SODIUM
     Route: 048
     Dates: start: 20140808
  3. WARFARIN SODIUM. [Concomitant]
     Active Substance: WARFARIN SODIUM
     Route: 048
     Dates: start: 20130409
  4. ESTROPIPATE. [Concomitant]
     Active Substance: ESTROPIPATE
     Route: 048
     Dates: start: 20130409
  5. TRAZODONE [Concomitant]
     Active Substance: TRAZODONE HYDROCHLORIDE
     Route: 048
     Dates: start: 20140808
  6. ERGOCALCIFEROL. [Concomitant]
     Active Substance: ERGOCALCIFEROL
     Dosage: TAKE 1 CAPSULE BY MOUTH EVERY SATURDAY AND SUNDAY
     Route: 048
     Dates: start: 20170913, end: 20180228
  7. ZOLEDRONIC ACID [Concomitant]
     Active Substance: ZOLEDRONIC ACID
     Dosage: 5 MG/100 ML INFUSE INTRAVENSOUL Y OVER 15 MINUTES AS PER INSTRUCTIONS. PREMEDICATE WITH ACETAMINOPHE
     Route: 042
     Dates: start: 20170912
  8. GADAVIST [Concomitant]
     Active Substance: GADOBUTROL
  9. RECLAST [Concomitant]
     Active Substance: ZOLEDRONIC ACID
     Route: 042
  10. LYRICA [Concomitant]
     Active Substance: PREGABALIN
     Route: 048
     Dates: start: 20130409
  11. PREDNISONE. [Concomitant]
     Active Substance: PREDNISONE
     Route: 048
  12. ACTEMRA [Suspect]
     Active Substance: TOCILIZUMAB
     Indication: RHEUMATOID ARTHRITIS
     Dosage: 400 MG/ 20 ML
     Route: 042
     Dates: start: 20170523
  13. FOLIC ACID. [Concomitant]
     Active Substance: FOLIC ACID
     Route: 048
     Dates: start: 20130409

REACTIONS (1)
  - Infusion related reaction [Unknown]
